FAERS Safety Report 19124132 (Version 4)
Quarter: 2021Q2

REPORT INFORMATION
  Report Type: Spontaneous
  Country: US (occurrence: US)
  Receive Date: 20210413
  Receipt Date: 20210625
  Transmission Date: 20210717
  Serious: Yes (Other)
  Sender: FDA-Public Use
  Company Number: US-ROCHE-2802581

PATIENT
  Sex: Female

DRUGS (1)
  1. GAVRETO [Suspect]
     Active Substance: PRALSETINIB
     Indication: LUNG NEOPLASM MALIGNANT
     Route: 048
     Dates: start: 20210316

REACTIONS (13)
  - Dry mouth [Unknown]
  - Platelet count decreased [Unknown]
  - Aspartate aminotransferase increased [Recovering/Resolving]
  - Haemorrhage [Unknown]
  - Blood pressure increased [Not Recovered/Not Resolved]
  - Fatigue [Unknown]
  - Alanine aminotransferase increased [Recovering/Resolving]
  - Arthralgia [Recovering/Resolving]
  - Nausea [Unknown]
  - Gingival swelling [Unknown]
  - Constipation [Unknown]
  - Dry skin [Unknown]
  - Renal impairment [Recovering/Resolving]
